FAERS Safety Report 14936481 (Version 7)
Quarter: 2021Q2

REPORT INFORMATION
  Report Type: Other
  Country: CN (occurrence: CN)
  Receive Date: 20180525
  Receipt Date: 20210607
  Transmission Date: 20210716
  Serious: Yes (Other)
  Sender: FDA-Public Use
  Company Number: CN-ROCHE-2044008

PATIENT
  Age: 59 Year
  Sex: Male
  Weight: 80 kg

DRUGS (2)
  1. AVASTIN [Suspect]
     Active Substance: BEVACIZUMAB
     Indication: NON-SMALL CELL LUNG CANCER
     Dosage: THERAPY SUSPENDED
     Route: 041
     Dates: start: 20161005, end: 20210302
  2. AVASTIN [Suspect]
     Active Substance: BEVACIZUMAB
     Dosage: RESTARTED ON AN UNKNOWN DATE
     Route: 041

REACTIONS (6)
  - Renal impairment [Unknown]
  - Blood creatinine increased [Recovered/Resolved]
  - Gingival bleeding [Unknown]
  - Blood creatinine increased [Unknown]
  - Blood potassium increased [Unknown]
  - Protein urine present [Unknown]

NARRATIVE: CASE EVENT DATE: 20171121
